FAERS Safety Report 5741205-7 (Version None)
Quarter: 2008Q2

REPORT INFORMATION
  Report Type: 
  Country: None (occurrence: None)
  Receive Date: 20080514
  Receipt Date: 20080428
  Transmission Date: 20081010
  Serious: Yes (Hospitalization)
  Sender: FDA-Public Use
  Company Number: 8031616

PATIENT
  Age: 66 Year
  Sex: Female
  Weight: 75.9 kg

DRUGS (22)
  1. LORTAB [Suspect]
     Dosage: 10 MG PRN PO
     Route: 048
     Dates: start: 20080118
  2. HYDROMORPHONE HCL [Suspect]
     Dosage: 4 MG PRN PO
     Route: 048
     Dates: start: 20060101
  3. TAXOL [Suspect]
     Dosage: 504 MCG 1/W IV
     Route: 042
     Dates: start: 20080115, end: 20080131
  4. TAXOL [Suspect]
     Dosage: 165 MCG 1/W IV
     Route: 042
     Dates: start: 20080220
  5. TAXOL [Suspect]
     Dosage: 90 MG IV
     Route: 042
     Dates: start: 20080115, end: 20080131
  6. BEVACIZUMAB [Suspect]
     Dosage: 10 MG/KG 1/2W IV
     Route: 042
     Dates: start: 20080115, end: 20080131
  7. BEVACIZUMAB [Suspect]
     Dosage: 10 MG/KG 1/2W IV
     Route: 042
     Dates: start: 20080220
  8. PREDNISONE TAB [Concomitant]
  9. SULFASALAZINE [Concomitant]
  10. METHOTREXATE [Concomitant]
  11. PREGABALIN [Concomitant]
  12. PANTOPRAZOLE SODIUM [Concomitant]
  13. FOLIC ACID [Concomitant]
  14. CEVIMELINE HYDROCHLORIDE [Concomitant]
  15. STOOL SOFTNER (DOCUSATE SODIUM0 [Concomitant]
  16. ONDANSETRON [Concomitant]
  17. PROCHLORPERAZINE [Concomitant]
  18. DOXYCYCLINE [Concomitant]
  19. VITAMIN CAP [Concomitant]
  20. SODIUM CHLORIDE [Concomitant]
  21. FILGRASTIM [Concomitant]
  22. PREPARATIONS FOR TREATMENT OF WOUND + ULCERS [Concomitant]

REACTIONS (3)
  - ABDOMINAL PAIN [None]
  - ASTHENIA [None]
  - CONSTIPATION [None]
